FAERS Safety Report 4556944-3 (Version None)
Quarter: 2005Q1

REPORT INFORMATION
  Report Type: 
  Country: None (occurrence: None)
  Receive Date: 20050118
  Receipt Date: 20050106
  Transmission Date: 20050727
  Serious: Yes (Death, Other)
  Sender: FDA-Public Use
  Company Number: 2005007789

PATIENT
  Age: 72 Year
  Sex: Female

DRUGS (14)
  1. SULFASALAZINE [Suspect]
     Indication: RHEUMATOID ARTHRITIS
     Dosage: 3 GRAM (1 GRAM, EVERY DAY), ORAL
     Route: 048
     Dates: end: 20040601
  2. METHOTREXATE [Suspect]
     Indication: RHEUMATOID ARTHRITIS
     Dosage: SEE IMAGE
     Route: 048
     Dates: start: 20030901, end: 20040301
  3. METHOTREXATE [Suspect]
     Indication: RHEUMATOID ARTHRITIS
     Dosage: SEE IMAGE
     Route: 048
     Dates: start: 20040331, end: 20041117
  4. ADALIMUMAB                (ADALIMUMAB) [Suspect]
     Indication: RHEUMATOID ARTHRITIS
     Dosage: 40 MG (WEEKLY ALTERNATE WEEKS)), SUBCUTANEOUS
     Route: 058
     Dates: start: 20040712, end: 20041117
  5. RISEDRONATE SODIUM                   (RISEDRONATE SODIUM) [Concomitant]
  6. AMITRIPTYLINE HCL [Concomitant]
  7. LEKOVIT CA            (CALCIUM CARBONATE, COLECALCIFEROL) [Concomitant]
  8. FERROUS SULFATE TAB [Concomitant]
  9. FOLIC ACID [Concomitant]
  10. PREDNISOLONE [Concomitant]
  11. CODEINE PHOSPHATE AND ACETAMINOPHEN [Concomitant]
  12. LEVOTHYROXINE SODIUM [Concomitant]
  13. TRAMADOL HCL [Concomitant]
  14. LANSOPRAZOLE [Concomitant]

REACTIONS (2)
  - DYSPNOEA [None]
  - INTERSTITIAL LUNG DISEASE [None]
